FAERS Safety Report 19184756 (Version 1)
Quarter: 2021Q2

REPORT INFORMATION
  Report Type: Spontaneous
  Country: DE (occurrence: DE)
  Receive Date: 20210427
  Receipt Date: 20210427
  Transmission Date: 20210717
  Serious: Yes (Other)
  Sender: FDA-Public Use
  Company Number: DE-PFIZER INC-2021414212

PATIENT
  Age: 36 Year
  Sex: Female
  Weight: 80 kg

DRUGS (2)
  1. CYTOTEC [Suspect]
     Active Substance: MISOPROSTOL
     Indication: LABOUR INDUCTION
  2. CYTOTEC [Suspect]
     Active Substance: MISOPROSTOL
     Indication: AMNIOTIC FLUID VOLUME DECREASED
     Dosage: UNK
     Route: 048
     Dates: start: 20160712, end: 20160713

REACTIONS (8)
  - Anxiety [Unknown]
  - Rash [Recovered/Resolved]
  - Traumatic delivery [Unknown]
  - Asthenia [Recovered/Resolved]
  - Prolonged labour [Recovered/Resolved]
  - Off label use [Unknown]
  - Uterine tachysystole [Recovered/Resolved]
  - Asthma [Recovered/Resolved]

NARRATIVE: CASE EVENT DATE: 20160712
